FAERS Safety Report 4890503-8 (Version None)
Quarter: 2006Q1

REPORT INFORMATION
  Report Type: 
  Country: None (occurrence: None)
  Receive Date: 20060123
  Receipt Date: 20060123
  Transmission Date: 20060701
  Serious: Yes (Hospitalization, Other)
  Sender: FDA-Public Use
  Company Number: None

PATIENT
  Sex: Female
  Weight: 80.5 kg

DRUGS (5)
  1. CYCLOPHOSPHAMIDE [Suspect]
     Indication: BREAST CANCER
     Dosage: SEE IMAGE
     Dates: end: 20051123
  2. CYCLOPHOSPHAMIDE [Suspect]
     Indication: BREAST CANCER
     Dosage: SEE IMAGE
     Dates: start: 20060106
  3. DOXORUBICIN HCL [Suspect]
     Dosage: SEE IMAGE
     Dates: end: 20051123
  4. DOXORUBICIN HCL [Suspect]
     Dosage: SEE IMAGE
     Dates: start: 20060106
  5. TAXOL [Suspect]
     Dosage: SEE IMAGE
     Dates: start: 20060106, end: 20060106

REACTIONS (4)
  - CHEST PAIN [None]
  - DYSPNOEA [None]
  - PERICARDIAL EFFUSION [None]
  - PLEURAL EFFUSION [None]
